FAERS Safety Report 24155114 (Version 1)
Quarter: 2024Q3

REPORT INFORMATION
  Report Type: Spontaneous
  Country: CN (occurrence: CN)
  Receive Date: 20240731
  Receipt Date: 20240731
  Transmission Date: 20241016
  Serious: Yes (Hospitalization, Other)
  Sender: Granulation Technology, INC
  Company Number: CN-GTI-000257

PATIENT
  Age: 46 Year
  Sex: Male

DRUGS (6)
  1. MINOCYCLINE [Suspect]
     Active Substance: MINOCYCLINE HYDROCHLORIDE
     Indication: SAPHO syndrome
     Route: 065
  2. ETANERCEPT [Suspect]
     Active Substance: ETANERCEPT
     Indication: SAPHO syndrome
     Route: 065
  3. TOFACITINIB [Suspect]
     Active Substance: TOFACITINIB
     Indication: SAPHO syndrome
     Route: 065
  4. PREDNISONE [Suspect]
     Active Substance: PREDNISONE
     Indication: SAPHO syndrome
     Route: 048
  5. PREDNISONE [Suspect]
     Active Substance: PREDNISONE
     Indication: SAPHO syndrome
     Dosage: 2.5MG/D AT 2 WEEK INTERVAL
     Route: 048
  6. PREDNISONE [Suspect]
     Active Substance: PREDNISONE
     Indication: SAPHO syndrome
     Route: 048

REACTIONS (4)
  - SAPHO syndrome [Recovered/Resolved]
  - Multiple-drug resistance [Unknown]
  - Treatment failure [Unknown]
  - Symptom recurrence [Recovered/Resolved]
